FAERS Safety Report 9848796 (Version 5)
Quarter: 2014Q2

REPORT INFORMATION
  Report Type: Report from Study
  Country: GB (occurrence: GB)
  Receive Date: 20140128
  Receipt Date: 20140619
  Transmission Date: 20141212
  Serious: Yes (Hospitalization, Other)
  Sender: FDA-Public Use
  Company Number: GB-JNJFOC-20140112088

PATIENT
  Age: 76 Year
  Sex: Male
  Weight: 77 kg

DRUGS (14)
  1. RIVAROXABAN [Suspect]
     Indication: DEEP VEIN THROMBOSIS
     Route: 048
     Dates: start: 20140121
  2. RIVAROXABAN [Suspect]
     Indication: DEEP VEIN THROMBOSIS
     Route: 048
     Dates: start: 20131009, end: 20131029
  3. RIVAROXABAN [Suspect]
     Indication: DEEP VEIN THROMBOSIS
     Route: 048
     Dates: start: 20131030, end: 20140115
  4. RIVAROXABAN [Suspect]
     Indication: THROMBOSIS PROPHYLAXIS
     Route: 048
     Dates: start: 20131030, end: 20140115
  5. RIVAROXABAN [Suspect]
     Indication: THROMBOSIS PROPHYLAXIS
     Route: 048
     Dates: start: 20140121
  6. RIVAROXABAN [Suspect]
     Indication: THROMBOSIS PROPHYLAXIS
     Route: 048
     Dates: start: 20131009, end: 20131029
  7. CLOTRIMAZOLE [Concomitant]
     Route: 065
  8. AMOXICILLIN [Concomitant]
     Route: 065
  9. SILDENAFIL [Concomitant]
     Route: 065
  10. PREDNISOLONE [Concomitant]
     Route: 065
     Dates: start: 20020917, end: 20130922
  11. FUROSEMIDE [Concomitant]
     Route: 065
  12. VITAMIN B COMPLEX [Concomitant]
     Route: 065
  13. CLONAZEPAM [Concomitant]
     Route: 065
  14. CO CODAMOL [Concomitant]
     Dosage: 60/200
     Route: 065

REACTIONS (4)
  - Anaemia [Recovering/Resolving]
  - Dyspnoea [Recovered/Resolved with Sequelae]
  - Influenza [Recovering/Resolving]
  - Pain in extremity [Recovered/Resolved]
